FAERS Safety Report 14684076 (Version 2)
Quarter: 2018Q1

REPORT INFORMATION
  Report Type: Spontaneous
  Country: US (occurrence: US)
  Receive Date: 20180327
  Receipt Date: 20180328
  Transmission Date: 20180509
  Serious: Yes (Life-Threatening, Other)
  Sender: FDA-Public Use
  Company Number: US-GLAXOSMITHKLINE-US2018049817

PATIENT

DRUGS (1)
  1. LAMICTAL [Suspect]
     Active Substance: LAMOTRIGINE
     Indication: PRODUCT USED FOR UNKNOWN INDICATION

REACTIONS (4)
  - Abdominal pain upper [Recovering/Resolving]
  - Pharyngeal oedema [Recovering/Resolving]
  - Headache [Recovering/Resolving]
  - Stevens-Johnson syndrome [Unknown]

NARRATIVE: CASE EVENT DATE: 201803
